FAERS Safety Report 8765170 (Version 1)
Quarter: 2012Q4

REPORT INFORMATION
  Report Type: Report from Study
  Country: JP (occurrence: JP)
  Receive Date: 20120903
  Receipt Date: 20120903
  Transmission Date: 20130627
  Serious: Yes (Other)
  Sender: FDA-Public Use
  Company Number: JP-009507513-2012SP027249

PATIENT

DRUGS (15)
  1. PEGINTERFERON ALFA-2B [Suspect]
     Indication: HEPATITIS C
     Dosage: 1.5 Microgram per kilogram, qw
     Route: 058
     Dates: start: 20120306, end: 20120319
  2. PEGINTERFERON ALFA-2B [Suspect]
     Dosage: 1.2 Microgram per kilogram, qw
     Route: 058
     Dates: start: 20120326
  3. PEGINTERFERON ALFA-2B [Suspect]
     Dosage: 1.0 Microgram per kilogram, qw
     Route: 058
     Dates: start: 20120423, end: 20120810
  4. REBETOL CAPSULES 200MG [Suspect]
     Indication: HEPATITIS C
     Dosage: 800 mg, qd
     Route: 048
     Dates: start: 20120306, end: 20120325
  5. REBETOL CAPSULES 200MG [Suspect]
     Dosage: 400 mg, qd
     Route: 048
     Dates: start: 20120326, end: 20120401
  6. REBETOL CAPSULES 200MG [Suspect]
     Dosage: 200 mg, qd
     Route: 048
     Dates: start: 20120402, end: 20120810
  7. TELAVIC [Suspect]
     Indication: HEPATITIS C
     Dosage: 1500 mg, qd
     Route: 048
     Dates: start: 20120306, end: 20120520
  8. TELAVIC [Suspect]
     Dosage: 1000 mg, qd
     Route: 048
     Dates: start: 20120521, end: 20120527
  9. LIVALO [Concomitant]
     Indication: HYPERLIPIDAEMIA
     Dosage: 2 mg, qd
     Route: 048
  10. LIVALO [Concomitant]
     Dosage: 1 mg, qd
     Route: 048
  11. EPADEL S [Concomitant]
     Indication: HYPERLIPIDAEMIA
     Dosage: 1800 mg, qd
     Route: 048
  12. CLARITIN REDITABS TABLETS 10 MG [Concomitant]
     Indication: PROPHYLAXIS
     Dosage: 10 mg, qd
     Route: 048
  13. FEROTYM [Concomitant]
     Indication: IRON DEFICIENCY ANAEMIA
     Dosage: 100 mg, qd
     Route: 048
  14. EVAMYL [Concomitant]
     Indication: INSOMNIA
     Dosage: 0.5 mg, qd
     Route: 048
  15. MICARDIS [Concomitant]
     Indication: HYPERTENSION
     Dosage: 40 mg, qd
     Route: 048

REACTIONS (3)
  - Anaemia [Not Recovered/Not Resolved]
  - Anaemia [Not Recovered/Not Resolved]
  - Anaemia [Not Recovered/Not Resolved]
